FAERS Safety Report 13487826 (Version 1)
Quarter: 2017Q2

REPORT INFORMATION
  Report Type: Spontaneous
  Country: US (occurrence: US)
  Receive Date: 20170426
  Receipt Date: 20170426
  Transmission Date: 20170830
  Serious: No
  Sender: FDA-Public Use
  Company Number: US-ALKERMES INC.-ALK-2016-001197

PATIENT
  Age: 32 Year
  Sex: Male

DRUGS (1)
  1. VIVITROL [Suspect]
     Active Substance: NALTREXONE
     Indication: ALCOHOLISM
     Dosage: 380 MG, QMO
     Route: 030
     Dates: start: 20160225

REACTIONS (4)
  - Lethargy [Not Recovered/Not Resolved]
  - Hangover [Not Recovered/Not Resolved]
  - Upper-airway cough syndrome [Unknown]
  - Feeling abnormal [Not Recovered/Not Resolved]
